FAERS Safety Report 15316761 (Version 3)
Quarter: 2018Q4

REPORT INFORMATION
  Report Type: Spontaneous
  Country: JP (occurrence: JP)
  Receive Date: 20180824
  Receipt Date: 20181008
  Transmission Date: 20190204
  Serious: Yes (Other)
  Sender: FDA-Public Use
  Company Number: JP-009507513-1704JPN001472J

PATIENT
  Age: 74 Year
  Sex: Male
  Weight: 49 kg

DRUGS (4)
  1. NAIXAN [Concomitant]
     Active Substance: NAPROXEN SODIUM
     Indication: CANCER PAIN
     Dosage: 200 MG, BID
     Route: 048
  2. DECADRON [Concomitant]
     Active Substance: DEXAMETHASONE
     Indication: OESOPHAGITIS
     Dosage: 8.25 QD
     Route: 051
     Dates: end: 20170410
  3. KEYTRUDA [Suspect]
     Active Substance: PEMBROLIZUMAB
     Indication: LUNG SQUAMOUS CELL CARCINOMA STAGE IV
     Dosage: 200 MG, Q3W
     Route: 041
     Dates: start: 20170331
  4. DIART [Concomitant]
     Active Substance: AZOSEMIDE
     Indication: CARDIAC FAILURE
     Dosage: 60 MG, QD
     Route: 048

REACTIONS (2)
  - Pneumonia bacterial [Recovered/Resolved]
  - Oedema peripheral [Recovered/Resolved]

NARRATIVE: CASE EVENT DATE: 20170609
